FAERS Safety Report 24427073 (Version 1)
Quarter: 2024Q4

REPORT INFORMATION
  Report Type: Spontaneous
  Country: US (occurrence: US)
  Receive Date: 20241011
  Receipt Date: 20241011
  Transmission Date: 20250115
  Serious: Yes (Hospitalization)
  Sender: JUBILANT
  Company Number: None

PATIENT

DRUGS (10)
  1. OLANZAPINE [Suspect]
     Active Substance: OLANZAPINE
     Indication: Psychotic disorder
     Dosage: 15 MG, 5 MG IN THE MORNING AND 10 MG IN THE EVENING
  2. OLANZAPINE [Suspect]
     Active Substance: OLANZAPINE
     Indication: Alcohol use disorder
     Dosage: 10 MG, ONCE PER DAY
     Route: 065
  3. OLANZAPINE [Suspect]
     Active Substance: OLANZAPINE
     Indication: Mental impairment
     Dosage: 5 MG, ONCE PER DAY
     Route: 065
  4. OLANZAPINE [Suspect]
     Active Substance: OLANZAPINE
     Indication: Delusion
  5. OLANZAPINE [Suspect]
     Active Substance: OLANZAPINE
     Indication: Imprisonment
  6. VALPROIC ACID [Suspect]
     Active Substance: VALPROIC ACID
     Indication: Psychotic disorder
     Dosage: 1200 MG, 500 MG IN THE MORNING AND 700 MG IN THE EVENING
     Route: 065
  7. VALPROIC ACID [Suspect]
     Active Substance: VALPROIC ACID
     Indication: Imprisonment
     Dosage: 500 MG, ONCE PER DAY
     Route: 065
  8. VALPROIC ACID [Suspect]
     Active Substance: VALPROIC ACID
     Indication: Delusion
     Dosage: 700 MG, ONCE PER DAY
     Route: 065
  9. VALPROIC ACID [Suspect]
     Active Substance: VALPROIC ACID
     Indication: Mental impairment
  10. VALPROIC ACID [Suspect]
     Active Substance: VALPROIC ACID
     Indication: Alcohol use disorder

REACTIONS (1)
  - Periorbital oedema [Recovered/Resolved]
